FAERS Safety Report 7671519-5 (Version None)
Quarter: 2011Q3

REPORT INFORMATION
  Report Type: 
  Country: None (occurrence: None)
  Receive Date: 20110809
  Receipt Date: 20110729
  Transmission Date: 20111222
  Serious: Yes (Other)
  Sender: FDA-Public Use
  Company Number: US-KINGPHARMUSA00001-K201100904

PATIENT
  Sex: Female
  Weight: 41.27 kg

DRUGS (10)
  1. DEXLANSOPRAZOLE [Concomitant]
     Dosage: UNK
  2. FLECTOR [Suspect]
     Indication: ROTATOR CUFF SYNDROME
     Dosage: UNK PATCH, UNK
     Route: 061
     Dates: start: 20080601
  3. GRISEOFULVIN [Concomitant]
  4. RESTASIS [Concomitant]
     Dosage: UNK
  5. FLECTOR [Suspect]
     Indication: BURSITIS
  6. TAMOXIFEN CITRATE [Concomitant]
     Dosage: UNK
  7. RECLAST [Concomitant]
     Dosage: UNK
  8. LACTULOSE [Concomitant]
     Dosage: UNK
  9. MOTRIN [Concomitant]
     Dosage: UNK
  10. FUROSEMIDE [Concomitant]
     Dosage: UNK

REACTIONS (2)
  - BREAST CANCER [None]
  - BREAST CYST [None]
